FAERS Safety Report 15049109 (Version 1)
Quarter: 2018Q2

REPORT INFORMATION
  Report Type: Spontaneous
  Country: ES (occurrence: ES)
  Receive Date: 20180622
  Receipt Date: 20180622
  Transmission Date: 20180711
  Serious: Yes (Disabling)
  Sender: FDA-Public Use
  Company Number: PHHY2018ES026447

PATIENT
  Age: 24 Year
  Sex: Male

DRUGS (2)
  1. TOBRAMYCIN. [Suspect]
     Active Substance: TOBRAMYCIN
     Indication: PRODUCT USED FOR UNKNOWN INDICATION
     Dosage: UNK
     Route: 065
     Dates: start: 20160804, end: 20160822
  2. TOBRAMYCIN. [Suspect]
     Active Substance: TOBRAMYCIN
     Dosage: UNK
     Route: 065
     Dates: start: 20170828, end: 20170911

REACTIONS (1)
  - Hypoacusis [Not Recovered/Not Resolved]

NARRATIVE: CASE EVENT DATE: 201801
